FAERS Safety Report 4385765-X (Version None)
Quarter: 2004Q2

REPORT INFORMATION
  Report Type: 
  Country: None (occurrence: None)
  Receive Date: 20040628
  Receipt Date: 20031031
  Transmission Date: 20050107
  Serious: Yes (Hospitalization)
  Sender: FDA-Public Use
  Company Number: GB-MERCK-0311GBR00026

PATIENT
  Age: 74 Year
  Sex: Female

DRUGS (11)
  1. ACETAMINOPHEN [Concomitant]
     Route: 065
  2. FOSAMAX [Concomitant]
     Indication: OSTEOPOROSIS
     Route: 048
     Dates: end: 20030920
  3. ALFACALCIDOL [Concomitant]
     Indication: OSTEOPOROSIS
     Route: 048
  4. ASPIRIN [Suspect]
     Indication: ATHEROSCLEROSIS
     Route: 048
     Dates: start: 20020101, end: 20030920
  5. BETAHISTINE HYDROCHLORIDE [Concomitant]
     Route: 065
  6. CALCIUM CARBONATE AND CHOLECALCIFEROL [Concomitant]
     Indication: OSTEOPOROSIS
     Route: 048
  7. DIHYDROCODEINE [Concomitant]
     Route: 065
  8. IBUPROFEN [Suspect]
     Route: 061
     Dates: end: 20030920
  9. LEVOTHYROXINE SODIUM [Concomitant]
     Indication: HYPOTHYROIDISM
     Route: 048
  10. VIOXX [Suspect]
     Indication: BACK PAIN
     Route: 048
     Dates: start: 20030701, end: 20030920
  11. SIMVASTATIN [Concomitant]
     Indication: HYPERCHOLESTEROLAEMIA
     Route: 048

REACTIONS (4)
  - ASTHENIA [None]
  - HAEMATEMESIS [None]
  - MELAENA [None]
  - MYOCARDIAL INFARCTION [None]
